FAERS Safety Report 14611865 (Version 1)
Quarter: 2018Q1

REPORT INFORMATION
  Report Type: Spontaneous
  Country: US (occurrence: US)
  Receive Date: 20180307
  Receipt Date: 20180307
  Transmission Date: 20180509
  Serious: Yes (Hospitalization)
  Sender: FDA-Public Use
  Company Number: None

PATIENT
  Age: 58 Year
  Sex: Female

DRUGS (10)
  1. VORICONAZOLE. [Concomitant]
     Active Substance: VORICONAZOLE
  2. ESBRIET [Suspect]
     Active Substance: PIRFENIDONE
     Indication: PULMONARY FIBROSIS
     Route: 048
     Dates: start: 20160206
  3. HCTZ [Concomitant]
     Active Substance: HYDROCHLOROTHIAZIDE
  4. PRAVASTATIN. [Concomitant]
     Active Substance: PRAVASTATIN
  5. CRESEMBA [Concomitant]
     Active Substance: ISAVUCONAZONIUM SULFATE
  6. PROAIR HFA [Concomitant]
     Active Substance: ALBUTEROL SULFATE
  7. PANTOPRAZOLE [Concomitant]
     Active Substance: PANTOPRAZOLE
  8. AMLODIPINE [Concomitant]
     Active Substance: AMLODIPINE BESYLATE
  9. COMBIVENT [Concomitant]
     Active Substance: ALBUTEROL SULFATE\IPRATROPIUM BROMIDE
  10. SYMBICORT [Concomitant]
     Active Substance: BUDESONIDE\FORMOTEROL FUMARATE DIHYDRATE

REACTIONS (1)
  - Dyspnoea [None]

NARRATIVE: CASE EVENT DATE: 201802
